FAERS Safety Report 13879820 (Version 2)
Quarter: 2017Q3

REPORT INFORMATION
  Report Type: Spontaneous
  Country: US (occurrence: US)
  Receive Date: 20170818
  Receipt Date: 20170905
  Transmission Date: 20171127
  Serious: No
  Sender: FDA-Public Use
  Company Number: US-LEO PHARMA-304322

PATIENT
  Age: 68 Year
  Sex: Female

DRUGS (2)
  1. INGENOL MEBUTATE [Suspect]
     Active Substance: INGENOL MEBUTATE
     Indication: SKIN CANCER
     Route: 061
     Dates: start: 20170815, end: 20170817
  2. ACETYLSALICYLIC ACID [Concomitant]
     Active Substance: ASPIRIN
     Indication: PRODUCT USED FOR UNKNOWN INDICATION

REACTIONS (10)
  - Application site induration [Recovered/Resolved]
  - Mental impairment [Recovered/Resolved]
  - Application site erythema [Not Recovered/Not Resolved]
  - Application site scab [Unknown]
  - Application site burn [Recovered/Resolved]
  - Application site exfoliation [Recovered/Resolved]
  - Application site discolouration [Recovered/Resolved]
  - Product use in unapproved indication [Unknown]
  - Application site mass [Recovered/Resolved]
  - Application site discomfort [Recovered/Resolved]

NARRATIVE: CASE EVENT DATE: 20170815
